FAERS Safety Report 8715665 (Version 3)
Quarter: 2015Q2

REPORT INFORMATION
  Report Type: Spontaneous
  Country: US (occurrence: US)
  Receive Date: 20120809
  Receipt Date: 20150601
  Transmission Date: 20150821
  Serious: Yes (Hospitalization, Other)
  Sender: FDA-Public Use
  Company Number: US-BAYER-2012-080625

PATIENT
  Age: 33 Year
  Sex: Female
  Weight: 108.84 kg

DRUGS (9)
  1. MIRALAX [Concomitant]
     Active Substance: POLYETHYLENE GLYCOL 3350
     Dosage: UNK
     Dates: start: 20110727
  2. MIRENA [Suspect]
     Active Substance: LEVONORGESTREL
     Indication: CONTRACEPTION
     Dosage: 20 MCG/24HR, CONT
     Route: 015
     Dates: start: 20091023, end: 2011
  3. LYRICA [Concomitant]
     Active Substance: PREGABALIN
     Dosage: UNK
     Dates: start: 20110807
  4. LORTAB [Concomitant]
     Active Substance: ACETAMINOPHEN\HYDROCODONE BITARTRATE
     Dosage: UNK
     Dates: start: 20110807
  5. KEFLEX [Concomitant]
     Active Substance: CEPHALEXIN
     Dosage: UNK
     Dates: start: 20110807
  6. ZYPREXA [Concomitant]
     Active Substance: OLANZAPINE
  7. AUGMENTIN [Concomitant]
     Active Substance: AMOXICILLIN\CLAVULANATE POTASSIUM
  8. MIRENA [Suspect]
     Active Substance: LEVONORGESTREL
     Indication: MENORRHAGIA
  9. MELOXICAM. [Concomitant]
     Active Substance: MELOXICAM
     Dosage: UNK
     Dates: start: 20110807

REACTIONS (10)
  - Uterine perforation [None]
  - Fibromyalgia [None]
  - Abdominal pain [None]
  - Emotional distress [None]
  - Pain [None]
  - Peritonitis [None]
  - Injury [None]
  - Device dislocation [None]
  - Back pain [None]
  - Depression [None]

NARRATIVE: CASE EVENT DATE: 200910
